FAERS Safety Report 5593262-9 (Version None)
Quarter: 2008Q1

REPORT INFORMATION
  Report Type: 
  Country: None (occurrence: None)
  Receive Date: 20080116
  Receipt Date: 20080114
  Transmission Date: 20080703
  Serious: Yes (Death, Other)
  Sender: FDA-Public Use
  Company Number: PHRM2008FR00603

PATIENT
  Age: 81 Year
  Sex: Female

DRUGS (4)
  1. TRILEPTAL [Suspect]
     Indication: CONVULSION
     Dosage: 600 MG PER DAY
     Route: 048
     Dates: start: 20071120, end: 20071129
  2. PREDNISONE TAB [Concomitant]
  3. COUMADIN [Suspect]
     Indication: PHLEBITIS
     Route: 048
     Dates: start: 20071030, end: 20071127
  4. COUMADIN [Suspect]
     Route: 048
     Dates: start: 20071129

REACTIONS (3)
  - DEATH [None]
  - DRUG INTERACTION [None]
  - INTERNATIONAL NORMALISED RATIO INCREASED [None]
